FAERS Safety Report 8772656 (Version 1)
Quarter: 2012Q4

REPORT INFORMATION
  Report Type: 
  Country: BR (occurrence: BR)
  Receive Date: 20120905
  Receipt Date: 20120905
  Transmission Date: 20130627
  Serious: Yes (Hospitalization, Other)
  Sender: FDA-Public Use
  Company Number: PHHY2012BR075621

PATIENT
  Age: 66 Year
  Sex: Male

DRUGS (2)
  1. DIOVAN HCT [Suspect]
     Indication: DIABETES MELLITUS
     Dosage: 1 tablet (320/12.5 mg), daily
  2. DIOVAN HCT [Suspect]
     Indication: HYPERTENSION

REACTIONS (1)
  - Cerebrovascular accident [Recovering/Resolving]
